FAERS Safety Report 18116446 (Version 1)
Quarter: 2020Q3

REPORT INFORMATION
  Report Type: Other
  Country: BR (occurrence: BR)
  Receive Date: 20200805
  Receipt Date: 20200805
  Transmission Date: 20201103
  Serious: Yes (Other)
  Sender: FDA-Public Use
  Company Number: BR-US-PROVELL PHARMACEUTICALS LLC-9177991

PATIENT
  Age: 76 Year
  Sex: Female

DRUGS (3)
  1. LEVOTHYROXINE. [Suspect]
     Active Substance: LEVOTHYROXINE
     Dosage: TOOK LEVOTHYROXINE FOLLOWING FASTING
  2. SERTRALINE [Suspect]
     Active Substance: SERTRALINE HYDROCHLORIDE
     Indication: DEPRESSION
     Dosage: ADMINISTERED BY MACERATING TABLETS AND SOLUBILIZING THEM IN 10?30 ML OF ORANGE JUICE
  3. LEVOTHYROXINE. [Suspect]
     Active Substance: LEVOTHYROXINE
     Indication: HYPOTHYROIDISM
     Dosage: UKNOWN DOSE

REACTIONS (9)
  - Fatigue [Recovering/Resolving]
  - Aggression [Recovering/Resolving]
  - Dysphagia [Recovering/Resolving]
  - Hallucination [Recovering/Resolving]
  - Product administration error [Recovering/Resolving]
  - Agitation [Recovering/Resolving]
  - Apathy [Recovering/Resolving]
  - Cognitive disorder [Recovering/Resolving]
  - Drug ineffective [Recovering/Resolving]
